FAERS Safety Report 7377628-2 (Version None)
Quarter: 2011Q1

REPORT INFORMATION
  Report Type: 
  Country: None (occurrence: None)
  Receive Date: 20110328
  Receipt Date: 20110315
  Transmission Date: 20110831
  Serious: Yes (Other)
  Sender: FDA-Public Use
  Company Number: CA-SOLVAY-00211000343

PATIENT
  Age: 49 Year
  Sex: Male
  Weight: 117.9 kg

DRUGS (5)
  1. ASAPHEN 80MG [Suspect]
     Indication: PRODUCT USED FOR UNKNOWN INDICATION
     Dosage: DAILY DOSE: 80 MILLIGRAM(S)
     Route: 048
     Dates: start: 20100301
  2. BISOPROLOL 5MG [Suspect]
     Indication: PRODUCT USED FOR UNKNOWN INDICATION
     Dosage: DAILY DOSE: 10 MILLIGRAM(S)
     Route: 048
     Dates: start: 20100301
  3. COVERSYL [Suspect]
     Indication: MYOCARDIAL INFARCTION
     Dosage: DAILY DOSE: 4 MILLIGRAM(S)
     Route: 048
     Dates: start: 20100301
  4. CRESTOR [Suspect]
     Indication: PRODUCT USED FOR UNKNOWN INDICATION
     Dosage: DAILY DOSE: 40 MILLIGRAM(S)
     Route: 048
     Dates: start: 20100301
  5. PLAVIX [Suspect]
     Indication: PRODUCT USED FOR UNKNOWN INDICATION
     Dosage: DAILY DOSE: 75 MILLIGRAM(S)
     Route: 048
     Dates: start: 20100301

REACTIONS (6)
  - IRRITABILITY [None]
  - VISION BLURRED [None]
  - DIABETES MELLITUS [None]
  - MOOD SWINGS [None]
  - CONFUSIONAL STATE [None]
  - ABNORMAL BEHAVIOUR [None]
